FAERS Safety Report 5909383-4 (Version None)
Quarter: 2008Q4

REPORT INFORMATION
  Report Type: 
  Country: None (occurrence: None)
  Receive Date: 20081006
  Receipt Date: 20081002
  Transmission Date: 20090506
  Serious: Yes (Hospitalization)
  Sender: FDA-Public Use
  Company Number: JP-B.I. PHARMACEUTICALS,INC./RIDGEFIELD-2008-BP-15220NB

PATIENT
  Sex: Male
  Weight: 68 kg

DRUGS (8)
  1. MICARDIS [Suspect]
     Indication: HYPERTENSION
     Dosage: 40MG
     Route: 048
     Dates: start: 20060812, end: 20080501
  2. ATELEC [Concomitant]
     Indication: HYPERTENSION
     Dosage: 10MG
     Route: 048
     Dates: end: 20080501
  3. ASPIRIN [Concomitant]
     Indication: ARTERIOSCLEROSIS OBLITERANS
     Dosage: 100MG
     Route: 048
     Dates: start: 20040428
  4. WARFARIN SODIUM [Concomitant]
     Indication: ARTERIOSCLEROSIS OBLITERANS
     Dosage: 4MG
     Route: 048
     Dates: start: 20040428, end: 20080501
  5. ZYLORIC [Concomitant]
     Indication: HYPERURICAEMIA
     Dosage: 200MG
     Route: 048
     Dates: start: 20051102
  6. UNICON [Concomitant]
     Indication: ASTHMA
     Dosage: 400MG
     Route: 048
  7. SINGULAIR [Concomitant]
     Indication: ASTHMA
     Dosage: 10MG
     Route: 048
  8. HOKUNALIN [Concomitant]
     Indication: ASTHMA
     Dosage: 2MG
     Route: 062

REACTIONS (1)
  - CARDIAC FAILURE [None]
